FAERS Safety Report 8904479 (Version 1)
Quarter: 2012Q4

REPORT INFORMATION
  Report Type: 
  Country: US (occurrence: US)
  Receive Date: 20121113
  Receipt Date: 20121113
  Transmission Date: 20130627
  Serious: No
  Sender: FDA-Public Use
  Company Number: US-009507513-1211USA003497

PATIENT
  Sex: Male

DRUGS (4)
  1. RIBAVIRIN [Suspect]
     Indication: HEPATITIS C
     Dosage: UNK
     Dates: start: 19940107, end: 19940401
  2. RIBAVIRIN [Suspect]
     Dosage: UNK
     Dates: start: 2005
  3. [COMPOSITION UNSPECIFIED] [Suspect]
     Indication: HEPATITIS C
     Dosage: UNK
     Dates: start: 19940107, end: 19940401
  4. [COMPOSITION UNSPECIFIED] [Suspect]
     Dosage: UNK
     Dates: start: 2005

REACTIONS (1)
  - Drug ineffective [Unknown]
